FAERS Safety Report 5429413-6 (Version None)
Quarter: 2007Q3

REPORT INFORMATION
  Report Type: 
  Country: None (occurrence: None)
  Receive Date: 20070829
  Receipt Date: 20070730
  Transmission Date: 20080115
  Serious: Yes (Hospitalization)
  Sender: FDA-Public Use
  Company Number: JP-MERCK-0708USA05124

PATIENT
  Age: 56 Year
  Sex: Female

DRUGS (1)
  1. ZETIA [Suspect]
     Indication: HYPERCHOLESTEROLAEMIA
     Route: 048
     Dates: start: 20070622, end: 20070710

REACTIONS (2)
  - HEPATIC FUNCTION ABNORMAL [None]
  - NASOPHARYNGITIS [None]
